FAERS Safety Report 13808426 (Version 2)
Quarter: 2020Q1

REPORT INFORMATION
  Report Type: Report from Study
  Country: JP (occurrence: JP)
  Receive Date: 20170728
  Receipt Date: 20200110
  Transmission Date: 20200409
  Serious: Yes (Hospitalization, Other)
  Sender: FDA-Public Use
  Company Number: JP-INCYTE CORPORATION-2017IN005833

PATIENT

DRUGS (11)
  1. EPADEL [Concomitant]
     Active Substance: ICOSAPENT
     Indication: MYELOFIBROSIS
     Dosage: 1800 MG
     Route: 048
     Dates: start: 20071213
  2. JAKAVI [Suspect]
     Active Substance: RUXOLITINIB
     Indication: MYELOFIBROSIS
     Dosage: 5 MG, BID
     Route: 048
     Dates: start: 20150120, end: 20150217
  3. JAKAVI [Suspect]
     Active Substance: RUXOLITINIB
     Dosage: 15MG IN THE MORNING, 10MG IN THE EVENING
     Route: 048
     Dates: start: 20150929, end: 20160329
  4. JAKAVI [Suspect]
     Active Substance: RUXOLITINIB
     Dosage: 10 MG, BID
     Route: 048
     Dates: start: 20160329, end: 20160513
  5. JAKAVI [Suspect]
     Active Substance: RUXOLITINIB
     Dosage: 20MG AND 15MG ON ALTERNATE DAYS
     Route: 048
     Dates: start: 20160513, end: 20160708
  6. HYDREA [Concomitant]
     Active Substance: HYDROXYUREA
     Dosage: 1000 MG
     Route: 048
     Dates: start: 20140128, end: 20150202
  7. HYDREA [Concomitant]
     Active Substance: HYDROXYUREA
     Indication: MYELOFIBROSIS
     Dosage: 500 UNK
     Route: 048
     Dates: start: 20071013, end: 20141013
  8. JAKAVI [Suspect]
     Active Substance: RUXOLITINIB
     Dosage: 10 MG, BID
     Route: 048
     Dates: start: 20150217, end: 20150224
  9. JAKAVI [Suspect]
     Active Substance: RUXOLITINIB
     Dosage: 15 MG, BID
     Route: 048
     Dates: start: 20150224, end: 20150803
  10. JAKAVI [Suspect]
     Active Substance: RUXOLITINIB
     Dosage: 10 MG, BID
     Route: 048
     Dates: start: 20150804, end: 20150928
  11. JAKAVI [Suspect]
     Active Substance: RUXOLITINIB
     Dosage: 10 MG, BID
     Route: 048
     Dates: start: 20160708

REACTIONS (5)
  - Diarrhoea [Recovered/Resolved]
  - Oesophageal varices haemorrhage [Recovering/Resolving]
  - Splenomegaly [Recovering/Resolving]
  - Bone marrow failure [Unknown]
  - Anaemia [Recovering/Resolving]

NARRATIVE: CASE EVENT DATE: 20150622
